FAERS Safety Report 6636540-4 (Version None)
Quarter: 2010Q1

REPORT INFORMATION
  Report Type: 
  Country: None (occurrence: None)
  Receive Date: 20100311
  Receipt Date: 20100226
  Transmission Date: 20100710
  Serious: Yes (Other)
  Sender: FDA-Public Use
  Company Number: AVE_01633_2010

PATIENT
  Age: 49 Year
  Sex: Female

DRUGS (5)
  1. NICOTINE [Suspect]
     Indication: SMOKING CESSATION THERAPY
     Dosage: 21 MG QD TRANSDERMAL
     Route: 062
     Dates: start: 20100215, end: 20100224
  2. PREDNISONE TAB [Suspect]
     Indication: ASTHMA
     Dosage: (40 MG QD) (30 MG QD) (20 MG QD)
     Dates: start: 20100221, end: 20100101
  3. PREDNISONE TAB [Suspect]
     Indication: ASTHMA
     Dosage: (40 MG QD) (30 MG QD) (20 MG QD)
     Dates: start: 20100215, end: 20100217
  4. PREDNISONE TAB [Suspect]
     Indication: ASTHMA
     Dosage: (40 MG QD) (30 MG QD) (20 MG QD)
     Dates: start: 20100218, end: 20100220
  5. ANT-ASTHMATICS [Concomitant]

REACTIONS (3)
  - ASTHMA [None]
  - CONDITION AGGRAVATED [None]
  - WEIGHT INCREASED [None]
